FAERS Safety Report 6126518-1 (Version None)
Quarter: 2009Q1

REPORT INFORMATION
  Report Type: 
  Country: None (occurrence: None)
  Receive Date: 20090320
  Receipt Date: 20090306
  Transmission Date: 20090719
  Serious: Yes (Other)
  Sender: FDA-Public Use
  Company Number: US-PFIZER INC-2009183651

PATIENT
  Sex: Male
  Weight: 82.993 kg

DRUGS (2)
  1. ZOLOFT [Suspect]
     Indication: GENERALISED ANXIETY DISORDER
     Dates: start: 20000801
  2. RITALIN [Concomitant]

REACTIONS (1)
  - HIV TEST POSITIVE [None]
